FAERS Safety Report 5446537-8 (Version None)
Quarter: 2007Q3

REPORT INFORMATION
  Report Type: 
  Country: None (occurrence: None)
  Receive Date: 20070907
  Receipt Date: 20070827
  Transmission Date: 20080115
  Serious: Yes (Hospitalization, Other)
  Sender: FDA-Public Use
  Company Number: US-PFIZER INC-2007072313

PATIENT
  Age: 61 Year
  Sex: Female
  Weight: 93 kg

DRUGS (13)
  1. CHANTIX [Suspect]
     Indication: SMOKING CESSATION THERAPY
     Dates: start: 20070723, end: 20070728
  2. ALLEGRA [Concomitant]
  3. SPIRIVA [Concomitant]
  4. XOPENEX [Concomitant]
  5. ATROVENT [Concomitant]
  6. MONTELUKAST SODIUM [Concomitant]
  7. TOPROL-XL [Concomitant]
  8. VITAMIN CAP [Concomitant]
  9. EVISTA [Concomitant]
  10. FLEXERIL [Concomitant]
  11. AVAPRO [Concomitant]
  12. OXYCODONE HCL [Concomitant]
  13. METFORMIN [Concomitant]

REACTIONS (1)
  - HYPERSENSITIVITY [None]
